FAERS Safety Report 6551224-9 (Version None)
Quarter: 2010Q1

REPORT INFORMATION
  Report Type: 
  Country: None (occurrence: None)
  Receive Date: 20100125
  Receipt Date: 20100125
  Transmission Date: 20100710
  Serious: Yes (Hospitalization, Other)
  Sender: FDA-Public Use
  Company Number: US-ABBOTT-10P-163-0619033-00

PATIENT
  Sex: Male
  Weight: 92.162 kg

DRUGS (12)
  1. HUMIRA [Suspect]
     Indication: PSORIASIS
     Route: 058
     Dates: start: 20091011, end: 20091207
  2. HUMIRA [Suspect]
     Route: 058
     Dates: start: 20091223
  3. ACTONEL [Concomitant]
     Indication: PSORIASIS
  4. CARVEDILOL [Concomitant]
     Indication: HYPERTENSION
  5. DICLOFENAC SODIUM [Concomitant]
     Indication: PAIN
     Dosage: AND PRN
  6. FELODIPINE [Concomitant]
     Indication: DRUG USE FOR UNKNOWN INDICATION
  7. HYDROXYZINE [Concomitant]
     Indication: DRUG USE FOR UNKNOWN INDICATION
     Dosage: AND PRN
  8. NITROGLYCERIN [Concomitant]
     Indication: DRUG USE FOR UNKNOWN INDICATION
     Dosage: PRN
  9. SPIRIVA [Concomitant]
     Indication: SLEEP APNOEA SYNDROME
  10. TRIAMCINOLONE ACETONIDE [Concomitant]
     Indication: DRUG USE FOR UNKNOWN INDICATION
     Dosage: 14 DAYS ON 7 DAYS OFF
  11. VYTORIN [Concomitant]
     Indication: BLOOD CHOLESTEROL
     Dosage: 10/20 MG
  12. M.V.I. [Concomitant]
     Indication: DRUG USE FOR UNKNOWN INDICATION

REACTIONS (2)
  - CATARACT [None]
  - ROTATOR CUFF SYNDROME [None]
